FAERS Safety Report 7441336-X (Version None)
Quarter: 2011Q2

REPORT INFORMATION
  Report Type: 
  Country: None (occurrence: None)
  Receive Date: 20110415
  Receipt Date: 20110101
  Transmission Date: 20111010
  Serious: Yes (Hospitalization, Other)
  Sender: FDA-Public Use
  Company Number: 2011P1005060

PATIENT
  Age: 66 Year
  Sex: Male
  Weight: 83.9154 kg

DRUGS (14)
  1. LISINOPRIL [Concomitant]
  2. ACETYL SALICYLIC ACID USP BAT [Concomitant]
  3. ACETYL SALISYLIC ACID, (ASA) [Concomitant]
  4. SAW PALMETTO [Concomitant]
  5. SERTRALINE HYDROCHLORIDE [Concomitant]
  6. JANUVIA [Concomitant]
  7. AMIODARONE HCL [Suspect]
     Indication: HEART RATE INCREASED
     Dosage: 1 TABLET;QD;PO,4 TABLET;QD;PO, 1/2 TABLET;FRI;PO, 1 TABLET;MON;PO
     Route: 048
     Dates: start: 20040101, end: 20060101
  8. AMIODARONE HCL [Suspect]
     Indication: HEART RATE INCREASED
     Dosage: 1 TABLET;QD;PO,4 TABLET;QD;PO, 1/2 TABLET;FRI;PO, 1 TABLET;MON;PO
     Route: 048
     Dates: start: 20060101, end: 20060101
  9. MIRTAZAPINE [Concomitant]
  10. GLUCOSAMINE CHONODROITIN [Concomitant]
  11. SIMVASTATIN [Concomitant]
  12. MULTI-VITAMIN [Concomitant]
  13. ATENOLOL [Concomitant]
  14. GLYBURIDE AND METFORMIN HYDROCHLORIDE [Concomitant]

REACTIONS (5)
  - CARDIAC DISORDER [None]
  - HEART RATE DECREASED [None]
  - OVERDOSE [None]
  - HOSPITALISATION [None]
  - MENTAL DISORDER [None]
